FAERS Safety Report 18072142 (Version 1)
Quarter: 2020Q3

REPORT INFORMATION
  Report Type: Spontaneous
  Country: LV (occurrence: LV)
  Receive Date: 20200727
  Receipt Date: 20200727
  Transmission Date: 20201103
  Serious: Yes (Other)
  Sender: FDA-Public Use
  Company Number: NVSC2020LV203987

PATIENT
  Age: 41 Year
  Sex: Male
  Weight: 71 kg

DRUGS (2)
  1. DAILIPORT [Suspect]
     Active Substance: TACROLIMUS
     Indication: PROPHYLAXIS AGAINST TRANSPLANT REJECTION
     Dosage: 5 MG, QD (STRENGHT: 5MG)
     Route: 048
     Dates: start: 20200626, end: 20200701
  2. DAILIPORT [Suspect]
     Active Substance: TACROLIMUS
     Dosage: 1 MG, QD (STRENGTH: 1MG)
     Route: 048
     Dates: start: 20200626, end: 20200701

REACTIONS (5)
  - Paraesthesia [Unknown]
  - Muscle spasms [Unknown]
  - Sleep disorder [Unknown]
  - Anxiety [Unknown]
  - Dizziness [Unknown]

NARRATIVE: CASE EVENT DATE: 20200626
